FAERS Safety Report 23050634 (Version 1)
Quarter: 2023Q4

REPORT INFORMATION
  Report Type: Spontaneous
  Country: US (occurrence: US)
  Receive Date: 20231010
  Receipt Date: 20231010
  Transmission Date: 20240109
  Serious: Yes (Hospitalization, Other)
  Sender: FDA-Public Use
  Company Number: US-SUN PHARMACEUTICAL INDUSTRIES LTD-2023R1-411449

PATIENT
  Age: 19 Year

DRUGS (1)
  1. ASPIRIN [Suspect]
     Active Substance: ASPIRIN
     Indication: Product used for unknown indication
     Dosage: 325 MILLIGRAM, UNK, TOTAL 78 ASPRINE TABLET
     Route: 048

REACTIONS (2)
  - Overdose [Not Recovered/Not Resolved]
  - Toxicity to various agents [Unknown]
